FAERS Safety Report 9878984 (Version 1)
Quarter: 2014Q1

REPORT INFORMATION
  Report Type: Spontaneous
  Country: US (occurrence: US)
  Receive Date: 20140206
  Receipt Date: 20140206
  Transmission Date: 20141002
  Serious: No
  Sender: FDA-Public Use
  Company Number: US-ALLERGAN-1315400US

PATIENT
  Age: 62 Year
  Sex: Female

DRUGS (5)
  1. BOTOX COSMETIC [Suspect]
     Indication: SKIN WRINKLING
     Dosage: 42.5 UNITS, SINGLE
     Dates: start: 20130921, end: 20130921
  2. BOTOX COSMETIC [Suspect]
     Indication: SKIN WRINKLING
     Dosage: UNK
  3. BOTOX COSMETIC [Suspect]
     Indication: SKIN WRINKLING
  4. BOTOX COSMETIC [Suspect]
     Indication: SKIN WRINKLING
  5. JUVEDERM ULTRA XC [Suspect]
     Indication: DERMAL FILLER INJECTION
     Dosage: UNK UNK, SINGLE
     Dates: start: 20130921, end: 20130921

REACTIONS (3)
  - Off label use [Unknown]
  - Drug ineffective [Unknown]
  - Therapeutic response decreased [Unknown]
